FAERS Safety Report 16929230 (Version 1)
Quarter: 2019Q4

REPORT INFORMATION
  Report Type: Spontaneous
  Country: JP (occurrence: JP)
  Receive Date: 20191017
  Receipt Date: 20191017
  Transmission Date: 20200122
  Serious: Yes (Hospitalization, Other)
  Sender: FDA-Public Use
  Company Number: PHJP2019JP012938

PATIENT
  Age: 60 Year
  Sex: Male
  Weight: 74.9 kg

DRUGS (4)
  1. ETRETINATE [Concomitant]
     Active Substance: ETRETINATE
     Indication: PSORIASIS
     Dosage: UNK
     Route: 065
  2. SECUKINUMAB. [Suspect]
     Active Substance: SECUKINUMAB
     Dosage: UNK UNK, Q4W
     Route: 058
  3. TELMISARTAN. [Concomitant]
     Active Substance: TELMISARTAN
     Indication: PSORIASIS
     Dosage: UNK
     Route: 065
  4. SECUKINUMAB. [Suspect]
     Active Substance: SECUKINUMAB
     Indication: PSORIASIS
     Dosage: UNK, QW
     Route: 058

REACTIONS (6)
  - Nephrotic syndrome [Unknown]
  - Weight increased [Unknown]
  - Oedema peripheral [Unknown]
  - IgA nephropathy [Recovering/Resolving]
  - Dyslipidaemia [Unknown]
  - Haematuria [Unknown]
